FAERS Safety Report 16701069 (Version 1)
Quarter: 2020Q3

REPORT INFORMATION
  Report Type: Report from Study
  Country: US (occurrence: US)
  Receive Date: 20190814
  Receipt Date: 20190814
  Transmission Date: 20201104
  Serious: Yes (Death)
  Sender: FDA-Public Use
  Company Number: US-ROCHE-2374667

PATIENT
  Sex: Female

DRUGS (1)
  1. ALECTINIB. [Suspect]
     Active Substance: ALECTINIB
     Indication: BRONCHIAL CARCINOMA
     Dosage: TAKE 4 CAPSULE(S) BY MOUTH TWICE A DAY.
     Route: 048

REACTIONS (1)
  - Death [Fatal]
